FAERS Safety Report 10265838 (Version 1)
Quarter: 2014Q2

REPORT INFORMATION
  Report Type: Spontaneous
  Country: FR (occurrence: FR)
  Receive Date: 20140627
  Receipt Date: 20140627
  Transmission Date: 20141212
  Serious: Yes (Hospitalization)
  Sender: FDA-Public Use
  Company Number: FR-GLAXOSMITHKLINE-B1005766A

PATIENT
  Age: 72 Year
  Sex: Female

DRUGS (10)
  1. ZELITREX [Suspect]
     Dosage: 500MG TWICE PER DAY
     Route: 048
  2. BENDAMUSTINE [Suspect]
     Indication: CHRONIC LYMPHOCYTIC LEUKAEMIA
     Route: 065
     Dates: start: 20140324, end: 20140424
  3. RITUXIMAB [Suspect]
     Indication: CHRONIC LYMPHOCYTIC LEUKAEMIA
     Route: 065
     Dates: start: 20140324, end: 20140424
  4. BACTRIM FORTE [Suspect]
     Indication: PRODUCT USED FOR UNKNOWN INDICATION
     Route: 048
     Dates: end: 20140423
  5. LEDERFOLINE [Suspect]
     Indication: PRODUCT USED FOR UNKNOWN INDICATION
     Dosage: 25MG THREE TIMES PER WEEK
     Route: 048
     Dates: end: 20140423
  6. VENTOLINE [Concomitant]
     Route: 055
  7. SYMBICORT [Concomitant]
     Route: 055
  8. NASONEX [Concomitant]
     Route: 045
  9. MOPRAL [Concomitant]
     Dosage: 20MG PER DAY
     Route: 048
  10. IDELALISIB [Concomitant]
     Route: 065

REACTIONS (4)
  - Rash maculo-papular [Recovered/Resolved]
  - Pyrexia [Recovered/Resolved]
  - Hepatocellular injury [Recovered/Resolved]
  - Face oedema [Recovered/Resolved]
